FAERS Safety Report 11267676 (Version 3)
Quarter: 2015Q3

REPORT INFORMATION
  Report Type: Spontaneous
  Country: US (occurrence: US)
  Receive Date: 20150713
  Receipt Date: 20150915
  Transmission Date: 20151125
  Serious: Yes (Hospitalization, Other)
  Sender: FDA-Public Use
  Company Number: US-ACTELION-A-US2015-117331

PATIENT
  Age: 64 Year
  Sex: Female
  Weight: 146 kg

DRUGS (3)
  1. VENTAVIS [Suspect]
     Active Substance: ILOPROST
     Indication: PULMONARY HYPERTENSION
     Dosage: 5 MCG, 6-9 TIMES DAILY
     Route: 055
     Dates: start: 20140527
  2. RIOCIGUAT [Suspect]
     Active Substance: RIOCIGUAT
     Indication: COR PULMONALE
     Dosage: 2.5 MG, TID
     Route: 048
     Dates: start: 20150403
  3. XARELTO [Suspect]
     Active Substance: RIVAROXABAN
     Indication: PRODUCT USED FOR UNKNOWN INDICATION
     Route: 065

REACTIONS (10)
  - Paraesthesia oral [Unknown]
  - Epistaxis [Unknown]
  - Gingival bleeding [Unknown]
  - Cholelithiasis [Unknown]
  - Gallbladder disorder [Unknown]
  - Gingival operation [Unknown]
  - Dizziness [Unknown]
  - Mouth haemorrhage [Unknown]
  - Cough [Unknown]
  - Sinusitis [Unknown]
